FAERS Safety Report 14124185 (Version 1)
Quarter: 2017Q4

REPORT INFORMATION
  Report Type: Spontaneous
  Country: US (occurrence: US)
  Receive Date: 20171025
  Receipt Date: 20171025
  Transmission Date: 20180321
  Serious: No
  Sender: FDA-Public Use
  Company Number: US-ALEMBIC PHARMACUETICALS LIMITED-2017SCAL000744

PATIENT

DRUGS (3)
  1. NATURE-THROID [Concomitant]
     Active Substance: THYROID, PORCINE
     Indication: PRODUCT USED FOR UNKNOWN INDICATION
     Dosage: 1 DF, OD
     Route: 048
  2. MODAFINIL. [Suspect]
     Active Substance: MODAFINIL
     Indication: AUTOIMMUNE DISORDER
     Dosage: 1 DF, OD EVERY MORNING
     Route: 048
     Dates: start: 20170828
  3. MODAFINIL. [Suspect]
     Active Substance: MODAFINIL
     Indication: AUTOIMMUNE THYROIDITIS

REACTIONS (6)
  - Fatigue [Not Recovered/Not Resolved]
  - Drug ineffective for unapproved indication [Unknown]
  - Hypersomnia [Not Recovered/Not Resolved]
  - Feeling abnormal [Unknown]
  - Somnolence [Not Recovered/Not Resolved]
  - Drug effective for unapproved indication [Unknown]

NARRATIVE: CASE EVENT DATE: 20170828
